FAERS Safety Report 8206535-8 (Version None)
Quarter: 2012Q1

REPORT INFORMATION
  Report Type: 
  Country: None (occurrence: None)
  Receive Date: 20120313
  Receipt Date: 20110427
  Transmission Date: 20120608
  Serious: Yes (Hospitalization)
  Sender: FDA-Public Use
  Company Number: PHHO2011NL07249

PATIENT
  Sex: Female

DRUGS (2)
  1. METOPROLOL SUCCINATE [Suspect]
     Dosage: 50 MG, UNK
     Route: 048
     Dates: start: 20110412
  2. EVEROLIMUS [Suspect]
     Indication: CERVIX CARCINOMA
     Dosage: 7.5 MG, UNK
     Route: 048
     Dates: start: 20110413

REACTIONS (1)
  - CIRCULATORY COLLAPSE [None]
